FAERS Safety Report 11460015 (Version 5)
Quarter: 2016Q1

REPORT INFORMATION
  Report Type: Report from Study
  Country: FR (occurrence: FR)
  Receive Date: 20150904
  Receipt Date: 20160116
  Transmission Date: 20160525
  Serious: Yes (Other)
  Sender: FDA-Public Use
  Company Number: FR-BRISTOL-MYERS SQUIBB COMPANY-BMS-2015-057807

PATIENT
  Age: 70 Year
  Sex: Female
  Weight: 79 kg

DRUGS (2)
  1. NIVOLUMAB [Suspect]
     Active Substance: NIVOLUMAB
     Indication: MALIGNANT MELANOMA
     Dosage: 3 MG/KG, UNK
     Route: 065
  2. NIVOLUMAB [Suspect]
     Active Substance: NIVOLUMAB
     Dosage: 288 MG, UNK
     Route: 065
     Dates: start: 20151002

REACTIONS (4)
  - Toxic skin eruption [Unknown]
  - Neutrophil count abnormal [Unknown]
  - Blood thyroid stimulating hormone abnormal [Unknown]
  - Pancreatitis [Unknown]

NARRATIVE: CASE EVENT DATE: 20151001
